FAERS Safety Report 11497561 (Version 1)
Quarter: 2015Q3

REPORT INFORMATION
  Report Type: Report from Study
  Country: NL (occurrence: NL)
  Receive Date: 20150911
  Receipt Date: 20150911
  Transmission Date: 20151125
  Serious: Yes (Death, Hospitalization)
  Sender: FDA-Public Use
  Company Number: NL-INCYTE CORPORATION-2015IN001432

PATIENT
  Age: 68 Year
  Sex: Male
  Weight: 85 kg

DRUGS (10)
  1. ETOPOSIDE. [Concomitant]
     Active Substance: ETOPOSIDE
     Route: 065
  2. CISPLATIN. [Concomitant]
     Active Substance: CISPLATIN
     Route: 065
  3. ETOPOSIDE. [Concomitant]
     Active Substance: ETOPOSIDE
     Route: 065
  4. ETOPOSIDE. [Concomitant]
     Active Substance: ETOPOSIDE
     Route: 065
  5. JAKAFI [Suspect]
     Active Substance: RUXOLITINIB
     Indication: MYELOFIBROSIS
     Dosage: 20 MG, BID
     Route: 048
     Dates: start: 20121204, end: 20141129
  6. JAKAFI [Suspect]
     Active Substance: RUXOLITINIB
     Dosage: 10 MG, BID
     Route: 048
     Dates: start: 20141202, end: 201507
  7. CISPLATIN. [Concomitant]
     Active Substance: CISPLATIN
     Route: 065
  8. ETOPOSIDE. [Concomitant]
     Active Substance: ETOPOSIDE
     Indication: PRODUCT USED FOR UNKNOWN INDICATION
     Dosage: UNKNOWN
  9. CISPLATIN. [Concomitant]
     Active Substance: CISPLATIN
     Indication: PRODUCT USED FOR UNKNOWN INDICATION
     Dosage: UNKNWON
     Route: 065
  10. CISPLATIN. [Concomitant]
     Active Substance: CISPLATIN
     Route: 065

REACTIONS (5)
  - Concomitant disease progression [Fatal]
  - Axillary pain [Recovered/Resolved]
  - Thrombocytopenia [Unknown]
  - Neutropenia [Unknown]
  - Neuroendocrine tumour [Fatal]

NARRATIVE: CASE EVENT DATE: 20141125
